FAERS Safety Report 5692127-1 (Version None)
Quarter: 2008Q2

REPORT INFORMATION
  Report Type: 
  Country: None (occurrence: None)
  Receive Date: 20080402
  Receipt Date: 20080121
  Transmission Date: 20081010
  Serious: Yes (Death, Other)
  Sender: FDA-Public Use
  Company Number: IN-PFIZER INC-2008026292

PATIENT
  Sex: Male

DRUGS (2)
  1. SUTENT [Suspect]
     Indication: COLORECTAL CANCER METASTATIC
     Route: 048
  2. VELCADE [Suspect]
     Indication: COLORECTAL CANCER METASTATIC
     Route: 042

REACTIONS (3)
  - COLONIC OBSTRUCTION [None]
  - METASTASES TO GASTROINTESTINAL TRACT [None]
  - POST PROCEDURAL COMPLICATION [None]
